FAERS Safety Report 5982973-9 (Version None)
Quarter: 2008Q4

REPORT INFORMATION
  Report Type: 
  Country: None (occurrence: None)
  Receive Date: 20081125
  Receipt Date: 20071130
  Transmission Date: 20090506
  Serious: Yes (Life-Threatening)
  Sender: FDA-Public Use
  Company Number: 2007MP000665

PATIENT
  Age: 60 Year
  Sex: Female
  Weight: 69.8539 kg

DRUGS (4)
  1. GLIADEL [Suspect]
     Indication: GLIOBLASTOMA MULTIFORME
     Dosage: 38.5 MG;1X;ICER
     Dates: start: 20070507
  2. TEMOZOLOMIDE [Suspect]
     Indication: GLIOBLASTOMA MULTIFORME
     Dosage: 130 MG;QD;PO
     Route: 048
     Dates: start: 20070524, end: 20070901
  3. POLYGAM S/D [Concomitant]
  4. PLATELETS [Concomitant]

REACTIONS (1)
  - APLASTIC ANAEMIA [None]
